FAERS Safety Report 6982663-X (Version None)
Quarter: 2010Q3

REPORT INFORMATION
  Report Type: 
  Country: None (occurrence: None)
  Receive Date: 20100914
  Receipt Date: 20100402
  Transmission Date: 20110219
  Serious: Yes (Other)
  Sender: FDA-Public Use
  Company Number: US-PFIZER INC-2010012968

PATIENT
  Sex: Female
  Weight: 136 kg

DRUGS (12)
  1. LYRICA [Suspect]
     Indication: FIBROMYALGIA
     Dosage: 25 MG, 2X/DAY
     Route: 048
     Dates: start: 20091229, end: 20091231
  2. BENAZEPRIL HYDROCHLORIDE [Concomitant]
  3. NAPROXEN [Concomitant]
     Dosage: FREQUENCY: 2X/DAY,
  4. AMLODIPINE BESYLATE [Concomitant]
  5. OMEPRAZOLE [Concomitant]
  6. ACETAMINOPHEN [Concomitant]
  7. SEROQUEL [Concomitant]
  8. MORPHINE [Concomitant]
  9. ESTRADIOL [Concomitant]
  10. NASONEX [Concomitant]
  11. HYDROCODONE [Concomitant]
  12. PROGESTERONE [Concomitant]

REACTIONS (7)
  - ABDOMINAL PAIN [None]
  - ANGIOEDEMA [None]
  - BURNING SENSATION [None]
  - DIARRHOEA [None]
  - ERYTHEMA [None]
  - HYPOAESTHESIA [None]
  - MALAISE [None]
